FAERS Safety Report 9392851 (Version 2)
Quarter: 2013Q3

REPORT INFORMATION
  Report Type: Spontaneous
  Country: US (occurrence: US)
  Receive Date: 20130710
  Receipt Date: 20130726
  Transmission Date: 20140515
  Serious: No
  Sender: FDA-Public Use
  Company Number: US-B.I. PHARMACEUTICALS,INC./RIDGEFIELD-2013-BI-19625PF

PATIENT
  Age: 48 Year
  Sex: Female
  Weight: 74.84 kg

DRUGS (18)
  1. SPIRIVA [Suspect]
     Indication: EMPHYSEMA
     Dosage: 80 MCG
  2. PROCARDIA [Suspect]
     Indication: HYPERTENSION
     Dosage: 50 MG
  3. ALTACE [Suspect]
     Indication: HYPERTENSION
     Dosage: 10 MG
  4. PLAVIX [Concomitant]
     Dosage: 75 MG
  5. CALCIUM [Concomitant]
     Dosage: 1200 MG
  6. VITAMIN-D3 [Concomitant]
     Dosage: 5000 U
  7. VESICARE [Concomitant]
     Dosage: 5 MG
  8. FOLPLEX [Concomitant]
  9. NEXIUM [Concomitant]
     Dosage: 80 MG
  10. MAGNESIUM [Concomitant]
     Dosage: 500 MG
  11. TRILEPTAL [Concomitant]
     Dosage: 1200MG MORMING,600MG AFTERNOON,1200MG EVENING,
  12. CRESTOR [Concomitant]
     Dosage: 20 MG
  13. XOPENEX [Concomitant]
     Dosage: 2PUFFS NEEDED
  14. ZETIA [Concomitant]
     Dosage: 10 MG
  15. LOVAZA [Concomitant]
     Dosage: 2 G
  16. VIBRYD [Concomitant]
     Dosage: 40 MG
  17. NIASPAN [Concomitant]
     Dosage: 300 MG
  18. ONFI [Concomitant]
     Indication: CONVULSION
     Dosage: 20 MG

REACTIONS (1)
  - Osteitis deformans [Unknown]
